FAERS Safety Report 10991297 (Version 2)
Quarter: 2015Q2

REPORT INFORMATION
  Report Type: Spontaneous
  Country: US (occurrence: US)
  Receive Date: 20150406
  Receipt Date: 20150428
  Transmission Date: 20150821
  Serious: No
  Sender: FDA-Public Use
  Company Number: US-009507513-1503USA006393

PATIENT
  Age: 57 Year
  Sex: Female
  Weight: 84.35 kg

DRUGS (8)
  1. BELSOMRA [Suspect]
     Active Substance: SUVOREXANT
     Indication: INSOMNIA
     Dosage: 10 MG, QPM
     Route: 048
     Dates: start: 20150304, end: 20150305
  2. BELSOMRA [Suspect]
     Active Substance: SUVOREXANT
     Dosage: 20 MG, QPM
     Route: 048
     Dates: start: 20150308, end: 20150309
  3. ERGOCALCIFEROL. [Concomitant]
     Active Substance: ERGOCALCIFEROL
     Dosage: 5000 U
     Route: 048
  4. FRENADOL (ACETAMINOPHEN (+) CHLORPHENIRAMINE MALEATE (+) DEXTROMETHORP [Concomitant]
     Dosage: UNK, PRN
     Route: 048
  5. CYMBALTA [Concomitant]
     Active Substance: DULOXETINE HYDROCHLORIDE
     Dosage: 1
     Route: 048
  6. XANAX [Concomitant]
     Active Substance: ALPRAZOLAM
     Dosage: 1 MG, BID
     Route: 030
  7. LYRICA [Concomitant]
     Active Substance: PREGABALIN
     Dosage: UNK, BID
     Route: 048
  8. BELSOMRA [Suspect]
     Active Substance: SUVOREXANT
     Dosage: 15 MG, QPM
     Route: 048
     Dates: start: 20150306, end: 20150307

REACTIONS (1)
  - Insomnia [Recovered/Resolved]

NARRATIVE: CASE EVENT DATE: 20150304
